FAERS Safety Report 8252686-1 (Version None)
Quarter: 2012Q2

REPORT INFORMATION
  Report Type: 
  Country: None (occurrence: None)
  Receive Date: 20120402
  Receipt Date: 20110824
  Transmission Date: 20120825
  Serious: No
  Sender: FDA-Public Use
  Company Number: US-ABBOTT-11P-163-0849523-00

PATIENT
  Sex: Male
  Weight: 88.53 kg

DRUGS (2)
  1. ANDROGEL [Suspect]
     Indication: BLOOD TESTOSTERONE DECREASED
     Dosage: PACKETS 1
     Dates: start: 20110810
  2. LISINOPRIL [Concomitant]
     Indication: HYPERTENSION

REACTIONS (3)
  - POLLAKIURIA [None]
  - DYSURIA [None]
  - HAEMORRHAGE URINARY TRACT [None]
